FAERS Safety Report 25543773 (Version 1)
Quarter: 2025Q3

REPORT INFORMATION
  Report Type: Spontaneous
  Country: EU (occurrence: EU)
  Receive Date: 20250711
  Receipt Date: 20250711
  Transmission Date: 20251020
  Serious: Yes (Hospitalization)
  Sender: CHEPLAPHARM
  Company Number: None

PATIENT
  Age: 16 Year
  Sex: Male

DRUGS (6)
  1. OLANZAPINE [Suspect]
     Active Substance: OLANZAPINE
     Indication: Mania
  2. RISPERIDONE [Suspect]
     Active Substance: RISPERIDONE
     Indication: Autism spectrum disorder
  3. RISPERIDONE [Suspect]
     Active Substance: RISPERIDONE
     Indication: Aggression
  4. RISPERIDONE [Suspect]
     Active Substance: RISPERIDONE
     Indication: Mania
  5. METHYLPHENIDATE [Concomitant]
     Active Substance: METHYLPHENIDATE
     Indication: Aggression
  6. METHYLPHENIDATE [Concomitant]
     Active Substance: METHYLPHENIDATE
     Indication: Autism spectrum disorder

REACTIONS (2)
  - Extrapyramidal disorder [Recovering/Resolving]
  - Off label use [Unknown]
